FAERS Safety Report 17965404 (Version 1)
Quarter: 2020Q3

REPORT INFORMATION
  Report Type: Spontaneous
  Country: US (occurrence: US)
  Receive Date: 20200701
  Receipt Date: 20200701
  Transmission Date: 20201103
  Serious: No
  Sender: FDA-Public Use
  Company Number: US-GLAXOSMITHKLINE-US2020112917

PATIENT
  Age: 67 Year
  Sex: Female

DRUGS (1)
  1. VOLTAREN ARTHRITIS PAIN [Suspect]
     Active Substance: DICLOFENAC SODIUM
     Indication: ARTHRITIS
     Dosage: UNK,(I STARTED OUT 3 TIMES A DAY AND MOSTLY LATELY IT^S BEEN 2 TIMES FOR THE LAST 2 TO 3 WEEKS)
     Dates: start: 20200528

REACTIONS (1)
  - Inappropriate schedule of product administration [Unknown]
